FAERS Safety Report 10052916 (Version 2)
Quarter: 2014Q2

REPORT INFORMATION
  Report Type: Spontaneous
  Country: IT (occurrence: IT)
  Receive Date: 20140402
  Receipt Date: 20140428
  Transmission Date: 20141212
  Serious: Yes (Other)
  Sender: FDA-Public Use
  Company Number: IT-BRISTOL-MYERS SQUIBB COMPANY-20558367

PATIENT
  Age: 59 Year
  Sex: Female

DRUGS (7)
  1. ORENCIA [Suspect]
     Indication: RHEUMATOID ARTHRITIS
     Dosage: INFUSION SOLUTION?INTRUPTED ON 07MAR2014
     Route: 042
     Dates: start: 20120806
  2. DELTACORTENE [Suspect]
     Dosage: 5MG TABS
     Route: 048
  3. MTX [Concomitant]
  4. TRIATEC HCT [Concomitant]
     Dosage: 5MG TABS
     Route: 048
  5. LASIX [Concomitant]
     Dosage: 1/2TABS 25MG TWICE A WEEK
     Route: 048
  6. LIMPIDEX [Concomitant]
     Dosage: 15MG CAPS
     Route: 048
  7. DICLOREUM [Concomitant]
     Dosage: 100 MG TABS
     Route: 048

REACTIONS (1)
  - Hypertensive crisis [Recovered/Resolved]
